FAERS Safety Report 6795006-1 (Version None)
Quarter: 2010Q2

REPORT INFORMATION
  Report Type: 
  Country: None (occurrence: None)
  Receive Date: 20100624
  Receipt Date: 20100624
  Transmission Date: 20101027
  Serious: No
  Sender: FDA-Public Use
  Company Number: None

PATIENT
  Age: 54 Year
  Sex: Male
  Weight: 77.56 kg

DRUGS (2)
  1. OXYCODONE HCL [Suspect]
     Indication: PAIN
     Dosage: PO
     Route: 048
     Dates: start: 20090727
  2. METHADONE [Suspect]
     Indication: PAIN
     Dosage: 40 MG TID PO
     Route: 048
     Dates: start: 20080110

REACTIONS (3)
  - APNOEA [None]
  - RESPIRATORY DEPRESSION [None]
  - SOMNOLENCE [None]
